FAERS Safety Report 8112323-3 (Version None)
Quarter: 2012Q1

REPORT INFORMATION
  Report Type: 
  Country: None (occurrence: None)
  Receive Date: 20120203
  Receipt Date: 20120126
  Transmission Date: 20120608
  Serious: Yes (Life-Threatening, Other)
  Sender: FDA-Public Use
  Company Number: US-ALEXION PHARMACEUTICALS INC.-A201200101

PATIENT
  Sex: Female
  Weight: 13.5 kg

DRUGS (2)
  1. SOLIRIS [Suspect]
     Indication: HAEMOLYTIC URAEMIC SYNDROME
     Dosage: 600 MG, QW
     Dates: start: 20120115, end: 20120115
  2. SOLIRIS [Suspect]
     Dosage: 300 MG, UNK
     Route: 042
     Dates: start: 20120120

REACTIONS (16)
  - PROCEDURAL HYPOTENSION [None]
  - CATHETER SITE HAEMORRHAGE [None]
  - BRADYCARDIA [None]
  - RALES [None]
  - LEFT ATRIAL DILATATION [None]
  - INFUSION SITE EXTRAVASATION [None]
  - MITRAL VALVE INCOMPETENCE [None]
  - FLUID OVERLOAD [None]
  - HUMAN RHINOVIRUS TEST POSITIVE [None]
  - DEVICE DISLOCATION [None]
  - MYOCARDITIS [None]
  - COMPARTMENT SYNDROME [None]
  - LEFT VENTRICULAR DYSFUNCTION [None]
  - ENTEROVIRUS TEST POSITIVE [None]
  - EJECTION FRACTION DECREASED [None]
  - PERICARDIAL EFFUSION [None]
